FAERS Safety Report 24828393 (Version 1)
Quarter: 2025Q1

REPORT INFORMATION
  Report Type: Spontaneous
  Country: TR (occurrence: TR)
  Receive Date: 20250109
  Receipt Date: 20250109
  Transmission Date: 20250408
  Serious: Yes (Hospitalization, Other)
  Sender: NOVO NORDISK
  Company Number: TR-NOVOPROD-1344378

PATIENT
  Age: 17 Year
  Sex: Male
  Weight: 73.1 kg

DRUGS (7)
  1. INSULIN ASPART [Suspect]
     Active Substance: INSULIN ASPART
     Indication: Type 1 diabetes mellitus
  2. INSULIN ASPART [Suspect]
     Active Substance: INSULIN ASPART
     Dosage: 60 IU, QD (INSULIN TO CARBOHYDRATE RATIO 1:6)
  3. INSULIN GLARGINE [Concomitant]
     Active Substance: INSULIN GLARGINE
     Indication: Type 1 diabetes mellitus
     Dosage: 30 IU, QD
  4. METHIMAZOLE [Concomitant]
     Active Substance: METHIMAZOLE
     Dosage: 0.1 MG/KG, QD
  5. METHIMAZOLE [Concomitant]
     Active Substance: METHIMAZOLE
     Indication: Graves^ disease
     Dosage: 0.2 MG/KG, QD
  6. METHIMAZOLE [Concomitant]
     Active Substance: METHIMAZOLE
     Dosage: 0.2 MG/KG, QD
  7. METHIMAZOLE [Concomitant]
     Active Substance: METHIMAZOLE
     Dosage: 0.3 MG/KG, QD

REACTIONS (2)
  - Thyrotoxic periodic paralysis [Recovered/Resolved]
  - Hypokalaemia [Recovered/Resolved]
